FAERS Safety Report 9064225 (Version 1)
Quarter: 2013Q1

REPORT INFORMATION
  Report Type: Spontaneous
  Country: US (occurrence: US)
  Receive Date: 20130128
  Receipt Date: 20130128
  Transmission Date: 20140127
  Serious: No
  Sender: FDA-Public Use
  Company Number: US-MYLANLABS-2012S1025746

PATIENT
  Age: 84 Year
  Sex: Male
  Weight: 72.58 kg

DRUGS (7)
  1. TAMSULOSIN HYDROCHLORIDE [Suspect]
     Indication: BENIGN PROSTATIC HYPERPLASIA
     Route: 048
     Dates: start: 2009
  2. CARVEDILOL [Concomitant]
  3. ASA [Concomitant]
  4. FINASTERIDE [Concomitant]
  5. VIT D [Concomitant]
  6. LOSARTAN [Concomitant]
  7. VYTORIN [Concomitant]

REACTIONS (2)
  - Choking [Not Recovered/Not Resolved]
  - Product size issue [None]
